FAERS Safety Report 7215273-X (Version None)
Quarter: 2011Q1

REPORT INFORMATION
  Report Type: 
  Country: None (occurrence: None)
  Receive Date: 20110107
  Receipt Date: 20110104
  Transmission Date: 20110831
  Serious: Yes (Death)
  Sender: FDA-Public Use
  Company Number: US-KINGPHARMUSA00001-K201100008

PATIENT
  Age: 37 Year
  Sex: Female

DRUGS (14)
  1. ARIPIPRAZOLE [Suspect]
     Indication: COMPLETED SUICIDE
     Dosage: UNK
  2. RANITIDINE [Suspect]
     Indication: COMPLETED SUICIDE
     Dosage: UNK
  3. METFORMIN [Suspect]
     Indication: COMPLETED SUICIDE
     Dosage: UNK
  4. TOPIRAMATE [Suspect]
     Indication: COMPLETED SUICIDE
     Dosage: UNK
  5. DULOXETIME HYDROCHLORIDE [Suspect]
     Indication: COMPLETED SUICIDE
     Dosage: UNK
  6. ETHANOL [Suspect]
     Indication: COMPLETED SUICIDE
     Dosage: UNK
  7. LEVOXYL [Suspect]
     Indication: COMPLETED SUICIDE
     Dosage: UNK
  8. BUPROPION HCL [Suspect]
     Indication: COMPLETED SUICIDE
     Dosage: UNK
  9. CLONAZEPAM [Suspect]
     Indication: COMPLETED SUICIDE
     Dosage: UNK
  10. OXCARBAZEPINA [Suspect]
     Indication: COMPLETED SUICIDE
     Dosage: UNK
  11. GEMFIBROZIL [Suspect]
     Indication: COMPLETED SUICIDE
     Dosage: UNK
  12. SIMVASTATIN [Suspect]
     Indication: COMPLETED SUICIDE
     Dosage: UNK
  13. OPIOIDS [Suspect]
     Indication: COMPLETED SUICIDE
     Dosage: UNK
  14. PREDNISONE [Suspect]
     Indication: COMPLETED SUICIDE
     Dosage: UNK

REACTIONS (3)
  - COMPLETED SUICIDE [None]
  - INTENTIONAL DRUG MISUSE [None]
  - CARDIO-RESPIRATORY ARREST [None]
